APPROVED DRUG PRODUCT: PROMETHAZINE HYDROCHLORIDE
Active Ingredient: PROMETHAZINE HYDROCHLORIDE
Strength: 12.5MG
Dosage Form/Route: SUPPOSITORY;RECTAL
Application: A040479 | Product #001
Applicant: WATSON LABORATORIES INC
Approved: Jun 24, 2003 | RLD: No | RS: No | Type: DISCN